FAERS Safety Report 5265378-8 (Version None)
Quarter: 2007Q1

REPORT INFORMATION
  Report Type: 
  Country: None (occurrence: None)
  Receive Date: 20061213
  Receipt Date: 20040326
  Transmission Date: 20070707
  Serious: No
  Sender: FDA-Public Use
  Company Number: 2004UW04096

PATIENT
  Age: 74 Year
  Sex: Female
  Weight: 81.6475 kg

DRUGS (5)
  1. IRESSA [Suspect]
     Dosage: 250 MG PO
     Route: 048
  2. PAXIL [Concomitant]
  3. ZANTAC [Concomitant]
  4. LORCET-HD [Concomitant]
  5. PAIN MEDICATIONS [Concomitant]

REACTIONS (1)
  - DRUG INEFFECTIVE [None]
